FAERS Safety Report 6598169-6 (Version None)
Quarter: 2010Q1

REPORT INFORMATION
  Report Type: 
  Country: None (occurrence: None)
  Receive Date: 20100224
  Receipt Date: 20050208
  Transmission Date: 20100710
  Serious: No
  Sender: FDA-Public Use
  Company Number: US-ALLERGAN-200501044

PATIENT
  Age: 11 Year
  Sex: Female
  Weight: 43 kg

DRUGS (1)
  1. BOTOX [Suspect]
     Indication: DIPLEGIA
     Route: 030

REACTIONS (5)
  - DECREASED APPETITE [None]
  - DIZZINESS [None]
  - FATIGUE [None]
  - HEADACHE [None]
  - HYPERHIDROSIS [None]
